FAERS Safety Report 4382982-X (Version None)
Quarter: 2004Q2

REPORT INFORMATION
  Report Type: 
  Country: None (occurrence: None)
  Receive Date: 20040601
  Receipt Date: 20040211
  Transmission Date: 20050107
  Serious: Yes (Disabling, Other)
  Sender: FDA-Public Use
  Company Number: WAES 0402USA00951

PATIENT
  Age: 71 Year
  Sex: Male
  Weight: 103.4201 kg

DRUGS (19)
  1. ZETIA [Suspect]
     Indication: HYPERCHOLESTEROLAEMIA
     Dosage: 10 MG/ DAILY/ PO
     Route: 048
     Dates: start: 20031217
  2. ZETIA [Suspect]
     Indication: HYPERCHOLESTEROLAEMIA
     Dosage: 10 MG/ DAILY/ PO
     Route: 048
     Dates: start: 20040210
  3. ADVAIR DISKUS 100/50 [Concomitant]
  4. ATROVENT [Concomitant]
  5. AVANDIA [Concomitant]
  6. DILACOR XR [Concomitant]
  7. GLUCOVANCE [Concomitant]
  8. IMDUR [Concomitant]
  9. LANOXIN [Concomitant]
  10. LIPITOR [Concomitant]
  11. NEURONTIN [Concomitant]
  12. PROVENTIL-HFA [Concomitant]
  13. SINGULAIR [Concomitant]
  14. TRICOR [Concomitant]
  15. ALBUTEROL [Concomitant]
  16. AMITRIPTYLINE HYDROCHLORIDE [Concomitant]
  17. ASPIRIN [Concomitant]
  18. QUAIFENESIN [Concomitant]
  19. IPATROPIUM BROMIDE [Concomitant]

REACTIONS (1)
  - HYPERSENSITIVITY [None]
